FAERS Safety Report 6937386-X (Version None)
Quarter: 2010Q3

REPORT INFORMATION
  Report Type: 
  Country: None (occurrence: None)
  Receive Date: 20100823
  Receipt Date: 20100813
  Transmission Date: 20110219
  Serious: Yes (Death)
  Sender: FDA-Public Use
  Company Number: US-AMGEN-QUU429862

PATIENT
  Sex: Female

DRUGS (1)
  1. NPLATE [Suspect]
     Indication: MYELODYSPLASTIC SYNDROME
     Dates: start: 20090718, end: 20090724

REACTIONS (2)
  - PNEUMONIA [None]
  - RESPIRATORY FAILURE [None]
